FAERS Safety Report 4586906-1 (Version None)
Quarter: 2005Q1

REPORT INFORMATION
  Report Type: 
  Country: None (occurrence: None)
  Receive Date: 20050216
  Receipt Date: 20050216
  Transmission Date: 20050727
  Serious: Yes (Life-Threatening)
  Sender: FDA-Public Use
  Company Number: None

PATIENT
  Age: 55 Year
  Sex: Female
  Weight: 52.6173 kg

DRUGS (1)
  1. AZO (OTC) = PHENAZOPYRIDINE [Suspect]
     Indication: CYSTITIS
     Dosage: ORAL, 2 TABS
     Route: 048
     Dates: start: 20040823

REACTIONS (4)
  - HEART RATE INCREASED [None]
  - NAUSEA [None]
  - PARAESTHESIA [None]
  - SWELLING FACE [None]
